FAERS Safety Report 19739911 (Version 1)
Quarter: 2021Q3

REPORT INFORMATION
  Report Type: Spontaneous
  Country: FR (occurrence: FR)
  Receive Date: 20210824
  Receipt Date: 20210824
  Transmission Date: 20211014
  Serious: Yes (Other)
  Sender: FDA-Public Use
  Company Number: FR-MYLANLABS-2021M1053744

PATIENT
  Age: 64 Year
  Sex: Male
  Weight: 86 kg

DRUGS (6)
  1. PRAZEPAM [Suspect]
     Active Substance: PRAZEPAM
     Indication: PRODUCT USED FOR UNKNOWN INDICATION
     Dosage: 10 MILLIGRAM, QD
     Route: 048
     Dates: start: 20200513
  2. NICOPASS [Suspect]
     Active Substance: NICOTINE
     Indication: TOBACCO POISONING
     Dosage: 1 DOSAGE FORM, Q4H
     Route: 048
     Dates: start: 20200304
  3. ALPRAZOLAM. [Suspect]
     Active Substance: ALPRAZOLAM
     Indication: PRODUCT USED FOR UNKNOWN INDICATION
     Dosage: 0.5 MILLIGRAM, QD
     Route: 048
     Dates: start: 20200603
  4. TECENTRIQ [Suspect]
     Active Substance: ATEZOLIZUMAB
     Indication: SQUAMOUS CELL CARCINOMA OF LUNG
     Dosage: 1200 MILLIGRAM, Q3W
     Route: 042
     Dates: start: 20200820, end: 20210121
  5. INNOVAIR [Suspect]
     Active Substance: BECLOMETHASONE DIPROPIONATE\FORMOTEROL
     Indication: INCREASED BRONCHIAL SECRETION
     Dosage: 2 BOUFFEES PAR JOUR
     Route: 055
     Dates: start: 20201120
  6. SPIRIVA RESPIMAT [Suspect]
     Active Substance: TIOTROPIUM BROMIDE
     Indication: INCREASED BRONCHIAL SECRETION
     Dosage: 2 BOUFF?ES UNE FOIS PAR JOUR
     Route: 055
     Dates: start: 20201120

REACTIONS (1)
  - Polymyalgia rheumatica [Not Recovered/Not Resolved]

NARRATIVE: CASE EVENT DATE: 202101
